FAERS Safety Report 5467110-1 (Version None)
Quarter: 2007Q3

REPORT INFORMATION
  Report Type: 
  Country: None (occurrence: None)
  Receive Date: 20070921
  Receipt Date: 20070921
  Transmission Date: 20080115
  Serious: Yes (Other)
  Sender: FDA-Public Use
  Company Number: None

PATIENT
  Age: 58 Year
  Sex: Female
  Weight: 1179.3523 kg

DRUGS (1)
  1. JANUVIA [Suspect]
     Dosage: 100 MG ONCE DAILY PO
     Route: 048
     Dates: start: 20070515, end: 20070827

REACTIONS (1)
  - ALOPECIA [None]
